FAERS Safety Report 13652488 (Version 7)
Quarter: 2018Q4

REPORT INFORMATION
  Report Type: Report from Study
  Country: US (occurrence: US)
  Receive Date: 20170614
  Receipt Date: 20181026
  Transmission Date: 20190204
  Serious: Yes (Hospitalization, Other)
  Sender: FDA-Public Use
  Company Number: US-ACTELION-A-NJ2017-148329

PATIENT
  Age: 56 Year
  Sex: Female
  Weight: 82.54 kg

DRUGS (4)
  1. REVATIO [Suspect]
     Active Substance: SILDENAFIL CITRATE
     Indication: PRODUCT USED FOR UNKNOWN INDICATION
     Route: 065
  2. OPSUMIT [Suspect]
     Active Substance: MACITENTAN
     Indication: PULMONARY HYPERTENSION
     Dosage: 10 MG, QD
     Route: 048
     Dates: start: 20161109
  3. OPSUMIT [Suspect]
     Active Substance: MACITENTAN
     Dosage: 10 MG, QD
     Route: 048
     Dates: start: 201807
  4. ADCIRCA [Suspect]
     Active Substance: TADALAFIL
     Indication: PRODUCT USED FOR UNKNOWN INDICATION
     Route: 065

REACTIONS (36)
  - Feeling abnormal [Unknown]
  - Chest pain [Unknown]
  - Dyspnoea exertional [Unknown]
  - Weight decreased [Unknown]
  - Decreased appetite [Unknown]
  - Depression [Unknown]
  - Anxiety [Unknown]
  - Gastrointestinal disorder [Unknown]
  - Pulmonary fibrosis [Unknown]
  - Hepatitis [Unknown]
  - Cough [Unknown]
  - Cardiac flutter [Unknown]
  - Neuropathy peripheral [Unknown]
  - Abdominal distension [Unknown]
  - Hepatic fibrosis [Unknown]
  - Amnesia [Unknown]
  - Peripheral swelling [Unknown]
  - General physical health deterioration [Unknown]
  - HIV infection [Unknown]
  - Pneumonia [Unknown]
  - Bronchitis [Unknown]
  - Loss of consciousness [Unknown]
  - Palpitations [Unknown]
  - Syncope [Unknown]
  - Fatigue [Unknown]
  - Cardiac disorder [Unknown]
  - Dizziness postural [Unknown]
  - Hypertension [Unknown]
  - Dizziness [Unknown]
  - Malaise [Unknown]
  - Hypotension [Unknown]
  - Sleep apnoea syndrome [Unknown]
  - Frustration tolerance decreased [Unknown]
  - Heart rate increased [Unknown]
  - Dyspnoea [Unknown]
  - Nasopharyngitis [Unknown]

NARRATIVE: CASE EVENT DATE: 20170126
